FAERS Safety Report 5609581-3 (Version None)
Quarter: 2008Q1

REPORT INFORMATION
  Report Type: 
  Country: None (occurrence: None)
  Receive Date: 20080131
  Receipt Date: 20080123
  Transmission Date: 20080703
  Serious: Yes (Hospitalization, Congenital Anomaly)
  Sender: FDA-Public Use
  Company Number: A0681584A

PATIENT
  Sex: Male

DRUGS (8)
  1. PAXIL CR [Suspect]
     Indication: ANXIETY
     Dosage: 25MG PER DAY
     Dates: start: 20020901, end: 20040101
  2. PAXIL [Suspect]
     Indication: ANXIETY
     Dosage: 20MG PER DAY
     Dates: start: 20020901, end: 20040101
  3. PRENATAL VITAMINS [Concomitant]
     Dates: start: 20021201, end: 20030801
  4. ADVIL LIQUI-GELS [Concomitant]
     Dates: start: 20000101
  5. NYQUIL [Concomitant]
     Dates: start: 19960101
  6. TYLENOL [Concomitant]
     Dates: start: 20000101
  7. ROXICET [Concomitant]
  8. PHENERGAN HCL [Concomitant]

REACTIONS (28)
  - ABDOMINAL DISTENSION [None]
  - AORTIC VALVE INCOMPETENCE [None]
  - APNOEA [None]
  - ATELECTASIS [None]
  - ATRIAL SEPTAL DEFECT [None]
  - BRAIN NEOPLASM [None]
  - CARDIAC FAILURE [None]
  - CARDIAC FAILURE CONGESTIVE [None]
  - CARDIAC MURMUR [None]
  - CARDIOGENIC SHOCK [None]
  - CARDIOMEGALY [None]
  - CARDIOMYOPATHY [None]
  - CHEST PAIN [None]
  - CONGENITAL ANOMALY [None]
  - CONGENITAL CORONARY ARTERY MALFORMATION [None]
  - CYANOSIS [None]
  - DRUG EXPOSURE DURING PREGNANCY [None]
  - DRUG WITHDRAWAL SYNDROME [None]
  - HYPOXIA [None]
  - INTRAVENTRICULAR HAEMORRHAGE [None]
  - METABOLIC ACIDOSIS [None]
  - PULMONARY VALVE INCOMPETENCE [None]
  - PULMONARY VALVE STENOSIS [None]
  - RESPIRATORY DISTRESS [None]
  - RESPIRATORY FAILURE [None]
  - TRANSPOSITION OF THE GREAT VESSELS [None]
  - TRICUSPID VALVE INCOMPETENCE [None]
  - VENTRICULAR SEPTAL DEFECT [None]
